FAERS Safety Report 15053836 (Version 1)
Quarter: 2018Q2

REPORT INFORMATION
  Report Type: Spontaneous
  Country: IT (occurrence: IT)
  Receive Date: 20180622
  Receipt Date: 20180622
  Transmission Date: 20180711
  Serious: Yes (Other)
  Sender: FDA-Public Use
  Company Number: IT-AMGEN-ITANI2018081627

PATIENT
  Age: 66 Year
  Sex: Female

DRUGS (2)
  1. XGEVA [Suspect]
     Active Substance: DENOSUMAB
     Indication: METAPLASTIC BREAST CARCINOMA
     Dosage: 120 MG, CYCLICAL
     Route: 058
     Dates: start: 20141022, end: 20170614
  2. FULVESTRANT. [Concomitant]
     Active Substance: FULVESTRANT
     Indication: METAPLASTIC BREAST CARCINOMA
     Dosage: 250 MG, UNK
     Route: 030

REACTIONS (2)
  - Osteitis [Unknown]
  - Osteonecrosis of jaw [Unknown]

NARRATIVE: CASE EVENT DATE: 20171002
